FAERS Safety Report 8950081 (Version 4)
Quarter: 2013Q4

REPORT INFORMATION
  Report Type: Spontaneous
  Country: US (occurrence: US)
  Receive Date: 20121205
  Receipt Date: 20131015
  Transmission Date: 20140711
  Serious: Yes (Hospitalization, Other)
  Sender: FDA-Public Use
  Company Number: US-MERCK-1212USA001666

PATIENT
  Sex: Female
  Weight: 80.73 kg

DRUGS (18)
  1. FOSAMAX [Suspect]
     Indication: OSTEOPENIA
     Dosage: 70 MG, UNK
     Route: 048
     Dates: start: 2005, end: 2011
  2. ALENDRONATE SODIUM [Suspect]
     Dosage: 70 MG, UNK
     Route: 048
  3. VITAMINS (UNSPECIFIED) [Concomitant]
     Dosage: 1 DF, UNK
     Dates: start: 2000
  4. CLONAZEPAM [Concomitant]
     Indication: ANXIETY
  5. LORAZEPAM [Concomitant]
     Indication: ANXIETY
  6. HYDROCODONE [Concomitant]
     Indication: PAIN
  7. CELEBREX [Concomitant]
     Indication: DEPRESSION
  8. LIDODERM [Concomitant]
     Indication: FIBROMYALGIA
  9. CYMBALTA [Concomitant]
     Indication: FIBROMYALGIA
  10. SYNTHROID [Concomitant]
     Indication: HYPOTHYROIDISM
  11. MOBIC [Concomitant]
     Indication: INFLAMMATION
  12. TRAZODONE HYDROCHLORIDE [Concomitant]
     Indication: SLEEP DISORDER
  13. ZOLOFT [Concomitant]
     Indication: DEPRESSION
  14. CEPHALEXIN [Concomitant]
     Indication: INFECTION
  15. LANTUS [Concomitant]
     Indication: TYPE 1 DIABETES MELLITUS
     Dosage: 20 IU, BID
     Route: 058
  16. NOVOLOG [Concomitant]
     Indication: TYPE 1 DIABETES MELLITUS
     Dosage: SLIDING SCALE, TID-QID
     Route: 058
  17. [THERAPY UNSPECIFIED] [Concomitant]
     Indication: HYPERTENSION
     Dosage: UNK
     Dates: start: 1980
  18. [THERAPY UNSPECIFIED] [Concomitant]
     Indication: BLOOD CHOLESTEROL INCREASED
     Dosage: UNK
     Dates: start: 1990

REACTIONS (21)
  - Femur fracture [Unknown]
  - Intramedullary rod insertion [Unknown]
  - Hip arthroplasty [Unknown]
  - Coronary artery bypass [Unknown]
  - Mastectomy [Unknown]
  - Transfusion [Unknown]
  - Diabetes mellitus inadequate control [Unknown]
  - Humerus fracture [Unknown]
  - Coronary arterial stent insertion [Unknown]
  - Low turnover osteopathy [Unknown]
  - Vitamin D deficiency [Unknown]
  - Osteoporosis [Unknown]
  - Coronary artery disease [Unknown]
  - Coronary angioplasty [Unknown]
  - Diabetic neuropathy [Unknown]
  - Arthritis [Unknown]
  - Cataract [Unknown]
  - Cataract operation [Unknown]
  - Periarthritis [Not Recovered/Not Resolved]
  - Diabetes mellitus inadequate control [Unknown]
  - Foot fracture [Unknown]
